FAERS Safety Report 4630917-4 (Version None)
Quarter: 2005Q2

REPORT INFORMATION
  Report Type: 
  Country: None (occurrence: None)
  Receive Date: 20050407
  Receipt Date: 20050407
  Transmission Date: 20051028
  Serious: No
  Sender: FDA-Public Use
  Company Number: None

PATIENT
  Age: 52 Year
  Sex: Female
  Weight: 58.514 kg

DRUGS (2)
  1. KEPPRA [Suspect]
     Indication: CONVULSION
     Dosage: 2 TABLETS/DAILY
  2. KEPPRA [Suspect]
     Indication: OLFACTORY NERVE DISORDER
     Dosage: 2 TABLETS/DAILY

REACTIONS (4)
  - LOCAL SWELLING [None]
  - MUSCULOSKELETAL STIFFNESS [None]
  - SENSATION OF HEAVINESS [None]
  - SLUGGISHNESS [None]
